FAERS Safety Report 8500225-X (Version None)
Quarter: 2012Q3

REPORT INFORMATION
  Report Type: 
  Country: None (occurrence: None)
  Receive Date: 20120710
  Receipt Date: 20120704
  Transmission Date: 20120928
  Serious: Yes (Disabling, Other)
  Sender: FDA-Public Use
  Company Number: PHHY2012FR042633

PATIENT
  Sex: Male
  Weight: 73 kg

DRUGS (6)
  1. TRAMADOL HYDROCHLORIDE [Suspect]
     Indication: PAIN
     Dosage: 2 DF, QD
     Route: 048
     Dates: start: 20120424, end: 20120428
  2. CORGARD [Concomitant]
  3. ACETAMINOPHEN [Concomitant]
     Dosage: 2 G, DAILY
  4. AMLODIPINE BESYLATE [Concomitant]
  5. ALTIZIDE W/SPIRONOLACTONE [Concomitant]
  6. ASPIRIN [Concomitant]

REACTIONS (9)
  - FATIGUE [None]
  - HYPERHIDROSIS [None]
  - DRY MOUTH [None]
  - MALAISE [None]
  - BRADYCARDIA [None]
  - PALLOR [None]
  - FEELING ABNORMAL [None]
  - NAUSEA [None]
  - MUSCLE CONTRACTURE [None]
